FAERS Safety Report 5925585-5 (Version None)
Quarter: 2008Q4

REPORT INFORMATION
  Report Type: 
  Country: None (occurrence: None)
  Receive Date: 20081021
  Receipt Date: 20081014
  Transmission Date: 20090506
  Serious: Yes (Other)
  Sender: FDA-Public Use
  Company Number: A0744131A

PATIENT
  Age: 62 Year
  Sex: Male

DRUGS (6)
  1. MALARONE [Suspect]
     Indication: PROPHYLAXIS
     Dosage: 1TAB PER DAY
     Route: 048
     Dates: start: 20080601, end: 20080601
  2. VYTORIN [Concomitant]
  3. ALTACE [Concomitant]
  4. NIASPAN [Concomitant]
  5. ASPIRIN [Concomitant]
  6. FISH OIL [Concomitant]

REACTIONS (8)
  - ASTHENIA [None]
  - CLOSTRIDIAL INFECTION [None]
  - DIARRHOEA [None]
  - DYSPEPSIA [None]
  - LYMPHADENOPATHY [None]
  - MUSCULOSKELETAL DISCOMFORT [None]
  - NAUSEA [None]
  - VOMITING [None]
